FAERS Safety Report 20213226 (Version 1)
Quarter: 2021Q4

REPORT INFORMATION
  Report Type: Spontaneous
  Country: US (occurrence: US)
  Receive Date: 20211221
  Receipt Date: 20211221
  Transmission Date: 20220303
  Serious: No
  Sender: FDA-Public Use
  Company Number: US-SA-SAC20211216001183

PATIENT
  Age: 58 Year
  Sex: Female

DRUGS (3)
  1. DUPIXENT [Suspect]
     Active Substance: DUPILUMAB
     Indication: Nasal polyps
     Dosage: 300MG QOW
     Route: 058
     Dates: start: 20210619
  2. BENZONATATE [Concomitant]
     Active Substance: BENZONATATE
  3. FLUTICASONE PROPIONATE [Concomitant]
     Active Substance: FLUTICASONE PROPIONATE

REACTIONS (3)
  - Nasopharyngitis [Unknown]
  - Cough [Unknown]
  - Off label use [Unknown]

NARRATIVE: CASE EVENT DATE: 20210619
